FAERS Safety Report 23100128 (Version 1)
Quarter: 2023Q4

REPORT INFORMATION
  Report Type: Spontaneous
  Country: US (occurrence: None)
  Receive Date: 20231020
  Receipt Date: 20231020
  Transmission Date: 20240110
  Serious: Yes (Hospitalization)
  Sender: FDA-Public Use
  Company Number: None

PATIENT
  Age: 74 Year
  Sex: Male

DRUGS (2)
  1. HYDROCHLOROTHIAZIDE [Suspect]
     Active Substance: HYDROCHLOROTHIAZIDE
     Dates: start: 20210616, end: 20230329
  2. LISINOPRIL [Suspect]
     Active Substance: LISINOPRIL
     Dates: start: 20200408, end: 20230329

REACTIONS (1)
  - Acute kidney injury [None]

NARRATIVE: CASE EVENT DATE: 20230316
